FAERS Safety Report 4482667-5 (Version None)
Quarter: 2004Q4

REPORT INFORMATION
  Report Type: 
  Country: None (occurrence: None)
  Receive Date: 20041022
  Receipt Date: 20041021
  Transmission Date: 20050328
  Serious: Yes (Death, Life-Threatening)
  Sender: FDA-Public Use
  Company Number: PHBS2004ES13968

PATIENT
  Age: 93 Year
  Sex: Male

DRUGS (2)
  1. MELLARIL [Suspect]
     Dosage: 25 MG/D
     Route: 048
     Dates: end: 20031115
  2. ORFIDAL [Suspect]
     Dosage: 1 MG/D
     Route: 048
     Dates: end: 20031115

REACTIONS (3)
  - ASPIRATION BRONCHIAL [None]
  - ILEUS PARALYTIC [None]
  - PNEUMONIA [None]
